FAERS Safety Report 13689156 (Version 1)
Quarter: 2017Q2

REPORT INFORMATION
  Report Type: Spontaneous
  Country: US (occurrence: US)
  Receive Date: 20170623
  Receipt Date: 20170623
  Transmission Date: 20170830
  Serious: No
  Sender: FDA-Public Use
  Company Number: None

PATIENT
  Age: 63 Year
  Sex: Male

DRUGS (1)
  1. NINLARO [Suspect]
     Active Substance: IXAZOMIB
     Indication: PLASMA CELL MYELOMA
     Dosage: 4MG 3 WEEKS 1 WEEK OFF ORAL
     Route: 048
     Dates: start: 20160421

REACTIONS (2)
  - Neuropathy peripheral [None]
  - Pneumonia [None]

NARRATIVE: CASE EVENT DATE: 20160623
